FAERS Safety Report 16941862 (Version 1)
Quarter: 2019Q4

REPORT INFORMATION
  Report Type: Report from Study
  Country: GB (occurrence: GB)
  Receive Date: 20191021
  Receipt Date: 20191021
  Transmission Date: 20200122
  Serious: Yes (Hospitalization)
  Sender: FDA-Public Use
  Company Number: PHHY2018GB130723

PATIENT
  Sex: Male
  Weight: 112 kg

DRUGS (3)
  1. COSENTYX [Suspect]
     Active Substance: SECUKINUMAB
     Indication: FIBROMYALGIA
     Dosage: 300 MG, QMO
     Route: 058
     Dates: start: 20190418
  2. COSENTYX [Suspect]
     Active Substance: SECUKINUMAB
     Indication: ANKYLOSING SPONDYLITIS
     Dosage: 150 MG, UNK
     Route: 058
     Dates: start: 20180904
  3. COSENTYX [Suspect]
     Active Substance: SECUKINUMAB
     Indication: PSORIASIS
     Dosage: UNK
     Route: 065
     Dates: start: 201811

REACTIONS (7)
  - Headache [Unknown]
  - Somnolence [Unknown]
  - Fear of injection [Unknown]
  - Dry throat [Unknown]
  - Mouth ulceration [Unknown]
  - Mouth ulceration [Recovered/Resolved]
  - Product use in unapproved indication [Unknown]
